FAERS Safety Report 15314064 (Version 1)
Quarter: 2018Q3

REPORT INFORMATION
  Report Type: Report from Study
  Country: GB (occurrence: GB)
  Receive Date: 20180824
  Receipt Date: 20180824
  Transmission Date: 20181010
  Serious: Yes (Death)
  Sender: FDA-Public Use
  Company Number: GB-TEVA-2018-GB-948304

PATIENT

DRUGS (1)
  1. CAPECITABINE. [Suspect]
     Active Substance: CAPECITABINE
     Indication: PANCREATIC CARCINOMA
     Dosage: DELIVERED USING A MULTI?FIELD 3D CONFORMAL TECHNIQUE
     Route: 065

REACTIONS (2)
  - Sepsis [Fatal]
  - Gastrointestinal toxicity [Fatal]
